FAERS Safety Report 9247571 (Version 2)
Quarter: 2013Q2

REPORT INFORMATION
  Report Type: Report from Study
  Country: BR (occurrence: BR)
  Receive Date: 20130423
  Receipt Date: 20130426
  Transmission Date: 20140414
  Serious: Yes (Death)
  Sender: FDA-Public Use
  Company Number: PHHY2013BR039274

PATIENT
  Age: 89 Year
  Sex: Female

DRUGS (2)
  1. DIOVAN AMLO FIX [Suspect]
     Dosage: 1 DF (160MG VALS/5MG AMLO), PER DAY
  2. DIOVAN [Suspect]
     Dosage: 1 DF (80MG VALS), PER DAY
     Dates: start: 20121112

REACTIONS (2)
  - Death [Fatal]
  - Drug ineffective [Unknown]
